FAERS Safety Report 7402908-1 (Version None)
Quarter: 2011Q2

REPORT INFORMATION
  Report Type: 
  Country: None (occurrence: None)
  Receive Date: 20110408
  Receipt Date: 20110328
  Transmission Date: 20111010
  Serious: Yes (Death)
  Sender: FDA-Public Use
  Company Number: FR-ELI_LILLY_AND_COMPANY-FR201101003524

PATIENT
  Age: 74 Year
  Sex: Female

DRUGS (5)
  1. FORTEO [Suspect]
     Indication: OSTEOPOROTIC FRACTURE
     Dosage: 20 UG, DAILY (1/D)
     Route: 058
     Dates: start: 20090225, end: 20100826
  2. NEULEPTIL [Concomitant]
     Route: 048
  3. CACIT D3 [Concomitant]
     Indication: OSTEOPOROSIS
     Route: 048
  4. NOCTAMIDE [Concomitant]
     Indication: INSOMNIA
     Route: 048
  5. LIPANOR [Concomitant]
     Indication: HYPERCHOLESTEROLAEMIA
     Route: 048

REACTIONS (1)
  - BRAIN NEOPLASM [None]
